FAERS Safety Report 4934284-8 (Version None)
Quarter: 2006Q1

REPORT INFORMATION
  Report Type: 
  Country: None (occurrence: None)
  Receive Date: 20060307
  Receipt Date: 20051209
  Transmission Date: 20060701
  Serious: Yes (Life-Threatening)
  Sender: FDA-Public Use
  Company Number: DE-ROCHE-427996

PATIENT
  Age: 57 Year
  Sex: Male

DRUGS (3)
  1. DACLIZUMAB [Suspect]
     Route: 048
     Dates: start: 20050915
  2. TACROLIMUS [Suspect]
     Route: 048
     Dates: start: 20050915
  3. TACROLIMUS [Suspect]
     Route: 048

REACTIONS (1)
  - SEPSIS [None]
